FAERS Safety Report 5095208-9 (Version None)
Quarter: 2006Q3

REPORT INFORMATION
  Report Type: 
  Country: None (occurrence: None)
  Receive Date: 20060901
  Receipt Date: 20060824
  Transmission Date: 20061208
  Serious: Yes (Hospitalization)
  Sender: FDA-Public Use
  Company Number: 459753

PATIENT
  Age: 89 Year
  Sex: Female

DRUGS (7)
  1. CARVEDILOL [Suspect]
     Dosage: .5MG TWICE PER DAY
     Route: 048
  2. DIGOXIN [Suspect]
  3. ATACAND [Concomitant]
  4. DANCOR [Concomitant]
  5. SERESTA [Concomitant]
  6. SINTROM [Concomitant]
  7. CALPEROS D3 [Concomitant]

REACTIONS (7)
  - ASTHENIA [None]
  - ATRIAL FIBRILLATION [None]
  - BLOOD PRESSURE INCREASED [None]
  - BRADYCARDIA [None]
  - CARDIAC FAILURE [None]
  - DRUG INTERACTION [None]
  - DYSPNOEA [None]
